FAERS Safety Report 15904510 (Version 1)
Quarter: 2019Q1

REPORT INFORMATION
  Report Type: Report from Study
  Country: IE (occurrence: IE)
  Receive Date: 20190204
  Receipt Date: 20190204
  Transmission Date: 20190417
  Serious: Yes (Hospitalization)
  Sender: FDA-Public Use
  Company Number: IE-AMGEN-IRLSL2019003025

PATIENT
  Age: 65 Year
  Sex: Female

DRUGS (8)
  1. PANTOPRAZOLE [Concomitant]
     Active Substance: PANTOPRAZOLE
     Dosage: 40 MG, QD
     Route: 050
  2. QUESTRAN [Concomitant]
     Active Substance: CHOLESTYRAMINE
     Dosage: 4 G, TID
     Route: 050
  3. SALAZOPYRIN [Concomitant]
     Active Substance: SULFASALAZINE
     Dosage: 500 MG, QD
     Route: 050
  4. ONDANSETRON [Concomitant]
     Active Substance: ONDANSETRON
     Dosage: 4 MG, AS NECESSARY
     Route: 050
  5. TEVA EZETIMIBE [Concomitant]
     Dosage: 10 MG, QD
     Route: 050
  6. NEULASTA [Suspect]
     Active Substance: PEGFILGRASTIM
     Indication: PRODUCT USED FOR UNKNOWN INDICATION
     Dosage: 6 MG, AS PER PRESCRIPTION
     Route: 058
  7. CREON [Concomitant]
     Active Substance: PANCRELIPASE AMYLASE\PANCRELIPASE LIPASE\PANCRELIPASE PROTEASE
     Dosage: 300 MG, QD
     Route: 050
  8. LOMOTIL [Concomitant]
     Active Substance: ATROPINE SULFATE\DIPHENOXYLATE HYDROCHLORIDE
     Dosage: 50 MUG, TID
     Route: 050

REACTIONS (4)
  - Malaise [Not Recovered/Not Resolved]
  - Weight decreased [Not Recovered/Not Resolved]
  - Hypoaesthesia [Not Recovered/Not Resolved]
  - Haemoglobin decreased [Recovering/Resolving]

NARRATIVE: CASE EVENT DATE: 20190104
